FAERS Safety Report 20343124 (Version 1)
Quarter: 2022Q1

REPORT INFORMATION
  Report Type: Report from Study
  Country: IN (occurrence: IN)
  Receive Date: 20220117
  Receipt Date: 20220117
  Transmission Date: 20220423
  Serious: Yes (Death)
  Sender: FDA-Public Use
  Company Number: IN-NOVARTISPH-NVSC2021IN165390

PATIENT
  Age: 49 Year
  Sex: Male

DRUGS (2)
  1. SACUBITRIL\VALSARTAN [Suspect]
     Active Substance: SACUBITRIL\VALSARTAN
     Indication: Cardiac failure chronic
     Dosage: 0.5 DOSAGE FORM, BID (50 MG)
     Route: 048
     Dates: start: 20210619
  2. SACUBITRIL\VALSARTAN [Suspect]
     Active Substance: SACUBITRIL\VALSARTAN
     Dosage: 50 MG, BID
     Route: 048
     Dates: end: 20211226

REACTIONS (3)
  - Cardiac arrest [Fatal]
  - Prescribed underdose [Unknown]
  - Wrong technique in product usage process [Unknown]

NARRATIVE: CASE EVENT DATE: 20210619
